FAERS Safety Report 8545017-0 (Version None)
Quarter: 2012Q3

REPORT INFORMATION
  Report Type: 
  Country: None (occurrence: None)
  Receive Date: 20120727
  Receipt Date: 20120717
  Transmission Date: 20120928
  Serious: Yes (Hospitalization)
  Sender: FDA-Public Use
  Company Number: NL-GLAXOSMITHKLINE-B0818587A

PATIENT
  Sex: Female
  Weight: 75 kg

DRUGS (8)
  1. SIMVASTATIN [Concomitant]
     Dosage: 20MG PER DAY
     Dates: start: 19960101, end: 20120707
  2. TRAMADOL HCL [Concomitant]
     Dosage: 50MG THREE TIMES PER DAY
     Route: 065
  3. ACETAMINOPHEN [Concomitant]
     Dosage: 1000MG FOUR TIMES PER DAY
     Route: 065
  4. CLINDAMYCIN [Suspect]
     Indication: CELLULITIS
     Dosage: 600MG THREE TIMES PER DAY
     Dates: start: 20120628, end: 20120707
  5. METOPROLOL SUCCINATE [Concomitant]
     Dosage: 100MG PER DAY
     Route: 065
     Dates: start: 19960101, end: 20120707
  6. ACENOCOUMAROL [Concomitant]
     Route: 065
     Dates: start: 19960101
  7. AMOXICILLIN AND CLAVULANATE POTASSIUM [Suspect]
     Indication: CELLULITIS
     Dosage: 400MG THREE TIMES PER DAY
     Route: 042
     Dates: start: 20120604
  8. ENALAPRIL MALEATE [Concomitant]
     Dosage: 20MG PER DAY
     Dates: start: 19960101, end: 20120707

REACTIONS (4)
  - DRUG RASH WITH EOSINOPHILIA AND SYSTEMIC SYMPTOMS [None]
  - HEPATITIS CHOLESTATIC [None]
  - C-REACTIVE PROTEIN INCREASED [None]
  - EOSINOPHILIA [None]
